FAERS Safety Report 4729379-8 (Version None)
Quarter: 2005Q3

REPORT INFORMATION
  Report Type: 
  Country: None (occurrence: None)
  Receive Date: 20050729
  Receipt Date: 20050725
  Transmission Date: 20060218
  Serious: Yes (Life-Threatening, Hospitalization)
  Sender: FDA-Public Use
  Company Number: PHBS2005JP10790

PATIENT
  Age: 63 Year
  Sex: Male

DRUGS (4)
  1. DIOVAN [Suspect]
     Dosage: 40 MG/DAY
     Route: 048
     Dates: start: 20050705, end: 20050713
  2. OMEPRAZOLE [Suspect]
     Dosage: 40 MG/DAY
     Route: 042
     Dates: start: 20050628, end: 20050704
  3. OMEPRAZOLE [Suspect]
     Dosage: 20 MG/DAY
     Route: 048
     Dates: start: 20050705, end: 20050713
  4. ADALAT [Suspect]
     Dosage: 40 MG/DAY
     Route: 048
     Dates: start: 20050625, end: 20050713

REACTIONS (5)
  - C-REACTIVE PROTEIN INCREASED [None]
  - INTERSTITIAL LUNG DISEASE [None]
  - LUNG INFILTRATION [None]
  - PO2 ABNORMAL [None]
  - WHITE BLOOD CELL COUNT DECREASED [None]
